FAERS Safety Report 11215912 (Version 1)
Quarter: 2015Q2

REPORT INFORMATION
  Report Type: Spontaneous
  Country: GB (occurrence: None)
  Receive Date: 20150622
  Receipt Date: 20150622
  Transmission Date: 20150821
  Serious: Yes (Hospitalization)
  Sender: FDA-Public Use
  Company Number: 2015GB0326

PATIENT
  Sex: Male

DRUGS (2)
  1. STELARA [Suspect]
     Active Substance: USTEKINUMAB
     Indication: PSORIATIC ARTHROPATHY
  2. ANAKINRA (ANAKINRA) [Suspect]
     Active Substance: ANAKINRA

REACTIONS (8)
  - Headache [None]
  - Psoriatic arthropathy [None]
  - Drug ineffective [None]
  - Gout [None]
  - Muscular weakness [None]
  - Off label use [None]
  - Arthropathy [None]
  - Malaise [None]
